FAERS Safety Report 5633633-5 (Version None)
Quarter: 2008Q1

REPORT INFORMATION
  Report Type: 
  Country: None (occurrence: None)
  Receive Date: 20080131
  Receipt Date: 20071130
  Transmission Date: 20080703
  Serious: No
  Sender: FDA-Public Use
  Company Number: 163-21880-07120053

PATIENT
  Age: 66 Year
  Sex: Female

DRUGS (3)
  1. REVLIMID [Suspect]
     Indication: AMYLOIDOSIS
     Dosage: 15 MG, 1 IN 1 D, ORAL ; 15 MG, 1 IN 1 D, ORAL
     Route: 048
     Dates: start: 20070209, end: 20070301
  2. REVLIMID [Suspect]
     Indication: AMYLOIDOSIS
     Dosage: 15 MG, 1 IN 1 D, ORAL ; 15 MG, 1 IN 1 D, ORAL
     Route: 048
     Dates: start: 20071130
  3. DEXAMETHASONE TAB [Concomitant]

REACTIONS (3)
  - GAIT DISTURBANCE [None]
  - GINGIVITIS [None]
  - RASH PAPULAR [None]
